FAERS Safety Report 6028992-8 (Version None)
Quarter: 2008Q4

REPORT INFORMATION
  Report Type: 
  Country: None (occurrence: None)
  Receive Date: 20081231
  Receipt Date: 20081218
  Transmission Date: 20090506
  Serious: Yes (Hospitalization)
  Sender: FDA-Public Use
  Company Number: 8039100

PATIENT
  Age: 78 Year
  Sex: Female

DRUGS (3)
  1. KEPPRA [Suspect]
     Indication: CONVULSION
     Dosage: 2000 MG/ D PO
     Route: 048
     Dates: start: 20070601, end: 20081015
  2. ESOPRAL [Concomitant]
  3. MINIAS [Concomitant]

REACTIONS (1)
  - HYPONATRAEMIA [None]
